FAERS Safety Report 10860926 (Version 1)
Quarter: 2015Q1

REPORT INFORMATION
  Report Type: Report from Study
  Country: AR (occurrence: AR)
  Receive Date: 20150224
  Receipt Date: 20150224
  Transmission Date: 20150721
  Serious: Yes (Life-Threatening, Hospitalization, Other)
  Sender: FDA-Public Use
  Company Number: AR-BRISTOL-MYERS SQUIBB COMPANY-21614094

PATIENT
  Age: 62 Year
  Sex: Female

DRUGS (1)
  1. BELATACEPT [Suspect]
     Active Substance: BELATACEPT
     Indication: RENAL TRANSPLANT
     Dosage: 4
     Route: 065
     Dates: start: 20141016

REACTIONS (3)
  - Pulmonary thrombosis [Unknown]
  - Lung infection [Unknown]
  - Thrombosis [Unknown]

NARRATIVE: CASE EVENT DATE: 201411
